FAERS Safety Report 10069330 (Version 2)
Quarter: 2014Q2

REPORT INFORMATION
  Report Type: Spontaneous
  Country: US (occurrence: US)
  Receive Date: 20140409
  Receipt Date: 20140521
  Transmission Date: 20141212
  Serious: Yes (Death)
  Sender: FDA-Public Use
  Company Number: PHEH2014US006975

PATIENT
  Age: 33 Year
  Sex: Female

DRUGS (4)
  1. TRILEPTAL [Suspect]
     Indication: CONVULSION
     Dosage: UNK UKN, UNK
  2. KEPPRA [Suspect]
     Indication: CONVULSION
     Dosage: UNK UKN, UNK
  3. LAMICTAL [Suspect]
     Indication: CONVULSION
     Dosage: 300 MG, BID
     Dates: start: 2010
  4. MULTIVITAMIN [Concomitant]
     Dosage: UNK UKN, UNK

REACTIONS (2)
  - Road traffic accident [Fatal]
  - Head injury [Fatal]
